FAERS Safety Report 9394753 (Version 2)
Quarter: 2013Q3

REPORT INFORMATION
  Report Type: Report from Study
  Country: US (occurrence: US)
  Receive Date: 20130711
  Receipt Date: 20130802
  Transmission Date: 20140515
  Serious: Yes (Other)
  Sender: FDA-Public Use
  Company Number: PHHO2013US009050

PATIENT
  Age: 60 Year
  Sex: Male
  Weight: 81.36 kg

DRUGS (1)
  1. NO TREATMENT RECEIVED [Suspect]
     Indication: GOUT
     Dosage: UNK

REACTIONS (1)
  - Rectal cancer [Not Recovered/Not Resolved]
